FAERS Safety Report 7790620-9 (Version None)
Quarter: 2011Q3

REPORT INFORMATION
  Report Type: 
  Country: None (occurrence: None)
  Receive Date: 20110930
  Receipt Date: 20110921
  Transmission Date: 20111222
  Serious: Yes (Other)
  Sender: FDA-Public Use
  Company Number: JP-ASTRAZENECA-2011SE56459

PATIENT
  Age: 35 Year
  Sex: Female

DRUGS (1)
  1. MARCAINE [Suspect]
     Route: 037
     Dates: start: 20100301, end: 20100301

REACTIONS (1)
  - NEUROPATHY PERIPHERAL [None]
